FAERS Safety Report 16467050 (Version 4)
Quarter: 2019Q3

REPORT INFORMATION
  Report Type: Report from Study
  Country: FR (occurrence: FR)
  Receive Date: 20190624
  Receipt Date: 20190722
  Transmission Date: 20191004
  Serious: Yes (Hospitalization, Other)
  Sender: FDA-Public Use
  Company Number: FR-ROCHE-2336365

PATIENT
  Age: 57 Year
  Sex: Female
  Weight: 92 kg

DRUGS (2)
  1. BEVACIZUMAB. [Suspect]
     Active Substance: BEVACIZUMAB
     Indication: OVARIAN CANCER RECURRENT
     Dosage: ON 28/MAY/2019, SHE RECEIVED MOST RECENT DOSE OF BEVACIZUMAB OF 1350 MG PRIOR TO SAE.
     Route: 042
     Dates: start: 20190325
  2. ATEZOLIZUMAB. [Suspect]
     Active Substance: ATEZOLIZUMAB
     Indication: OVARIAN CANCER RECURRENT
     Dosage: ON 22/MAY/2019, SHE RECEIVED MOST RECENT DOSE OF ATEZOLIZUMAB PRIOR TO SERIOUS ADVERSE EVENT (SAE).
     Route: 042
     Dates: start: 20190522

REACTIONS (2)
  - Encephalopathy [Not Recovered/Not Resolved]
  - Abdominal pain [Not Recovered/Not Resolved]

NARRATIVE: CASE EVENT DATE: 20190606
